FAERS Safety Report 23139939 (Version 4)
Quarter: 2023Q4

REPORT INFORMATION
  Report Type: Report from Study
  Country: BR (occurrence: BR)
  Receive Date: 20231102
  Receipt Date: 20231206
  Transmission Date: 20240110
  Serious: Yes (Hospitalization)
  Sender: FDA-Public Use
  Company Number: BR-Eisai-EC-2023-150257

PATIENT
  Age: 44 Year
  Sex: Female
  Weight: 65.5 kg

DRUGS (7)
  1. LENVATINIB [Suspect]
     Active Substance: LENVATINIB
     Indication: Clear cell renal cell carcinoma
     Dosage: STARTING DOSE AT 20 MG, FLUCTUATED DOSAGE
     Route: 048
     Dates: start: 20220426, end: 20231002
  2. LENVATINIB [Suspect]
     Active Substance: LENVATINIB
     Route: 048
     Dates: start: 20231101
  3. QUAVONLIMAB [Suspect]
     Active Substance: QUAVONLIMAB
     Indication: Clear cell renal cell carcinoma
     Dosage: 425 MG (QUAVOLINLIMAB [MK-1308] 25 MG + PEMBROLIZUMAB 400 MG
     Dates: start: 20220426, end: 20230913
  4. DIPYRONE [Concomitant]
     Active Substance: DIPYRONE
     Dates: start: 20220520
  5. LOSARTAN [Concomitant]
     Active Substance: LOSARTAN
     Dates: start: 20220427
  6. AMLODIPINE [Concomitant]
     Active Substance: AMLODIPINE BESYLATE
     Dates: start: 20220503
  7. PEMBROLIZUMAB [Suspect]
     Active Substance: PEMBROLIZUMAB
     Dates: start: 20220426

REACTIONS (1)
  - Meningitis [Recovered/Resolved]

NARRATIVE: CASE EVENT DATE: 20230929
